FAERS Safety Report 5921947-0 (Version None)
Quarter: 2008Q3

REPORT INFORMATION
  Report Type: 
  Country: None (occurrence: None)
  Receive Date: 20080909
  Receipt Date: 20080625
  Transmission Date: 20090109
  Serious: Yes (Death)
  Sender: FDA-Public Use
  Company Number: 163-20785-08061600

PATIENT
  Age: 52 Year
  Sex: Male

DRUGS (4)
  1. THALOMID [Suspect]
     Indication: MULTIPLE MYELOMA
     Dosage: 300-50MG, DAILY, ORAL ; 300-200MG, DAILY, ORAL ; 400 MG, 2 IN 1 D, ORAL ; 200 MG, 1 IN 1 D, ORAL
     Route: 048
     Dates: start: 20010807, end: 20011001
  2. THALOMID [Suspect]
     Indication: MULTIPLE MYELOMA
     Dosage: 300-50MG, DAILY, ORAL ; 300-200MG, DAILY, ORAL ; 400 MG, 2 IN 1 D, ORAL ; 200 MG, 1 IN 1 D, ORAL
     Route: 048
     Dates: start: 20011029, end: 20070401
  3. THALOMID [Suspect]
     Indication: MULTIPLE MYELOMA
     Dosage: 300-50MG, DAILY, ORAL ; 300-200MG, DAILY, ORAL ; 400 MG, 2 IN 1 D, ORAL ; 200 MG, 1 IN 1 D, ORAL
     Route: 048
     Dates: start: 20070419, end: 20071101
  4. THALOMID [Suspect]
     Indication: MULTIPLE MYELOMA
     Dosage: 300-50MG, DAILY, ORAL ; 300-200MG, DAILY, ORAL ; 400 MG, 2 IN 1 D, ORAL ; 200 MG, 1 IN 1 D, ORAL
     Route: 048
     Dates: start: 20080109, end: 20080401

REACTIONS (1)
  - DEATH [None]
